FAERS Safety Report 5232789-6 (Version None)
Quarter: 2007Q1

REPORT INFORMATION
  Report Type: 
  Country: None (occurrence: None)
  Receive Date: 20070206
  Receipt Date: 20070206
  Transmission Date: 20070707
  Serious: Yes (Other)
  Sender: FDA-Public Use
  Company Number: None

PATIENT
  Sex: Female
  Weight: 74.8435 kg

DRUGS (3)
  1. CEPHALEXIN [Suspect]
     Indication: SINUSITIS
     Dosage: 1 PILL 3 TIMES A DAY PO
     Route: 048
     Dates: start: 20070129, end: 20070130
  2. BENADRYL [Concomitant]
  3. ITCH CREAM [Concomitant]

REACTIONS (16)
  - ABASIA [None]
  - BURNING SENSATION [None]
  - CONFUSIONAL STATE [None]
  - DISORIENTATION [None]
  - DYSARTHRIA [None]
  - FEAR [None]
  - HEADACHE [None]
  - ILL-DEFINED DISORDER [None]
  - MOVEMENT DISORDER [None]
  - NAUSEA [None]
  - POSTURE ABNORMAL [None]
  - PRURITUS GENERALISED [None]
  - RASH PAPULAR [None]
  - RESPIRATORY DISORDER [None]
  - SPEECH DISORDER [None]
  - UNRESPONSIVE TO STIMULI [None]
